FAERS Safety Report 24422175 (Version 3)
Quarter: 2024Q4

REPORT INFORMATION
  Report Type: Spontaneous
  Country: US (occurrence: US)
  Receive Date: 20241010
  Receipt Date: 20241111
  Transmission Date: 20250114
  Serious: No
  Sender: DR REDDYS
  Company Number: US-DRL-USA-SPO/USA/24/0014527

PATIENT
  Age: 46 Year
  Sex: Female
  Weight: 64.864 kg

DRUGS (3)
  1. DOANS EXTRA STRENGTH [Suspect]
     Active Substance: MAGNESIUM SALICYLATE
     Indication: Back pain
     Dosage: TOOK 2 TABLETS WITH DINNER ON 9/26/2024 AND DIDN^T TAKE ANYMORE SINCE THEY DIDN^T WORK??MAGNESIUMSAL
     Route: 048
     Dates: start: 20240926, end: 20240927
  2. DOANS EXTRA STRENGTH [Suspect]
     Active Substance: MAGNESIUM SALICYLATE
     Indication: Arthralgia
  3. DOANS EXTRA STRENGTH [Suspect]
     Active Substance: MAGNESIUM SALICYLATE
     Indication: Neck pain

REACTIONS (1)
  - Drug ineffective [Unknown]
